FAERS Safety Report 9693799 (Version 2)
Quarter: 2013Q4

REPORT INFORMATION
  Report Type: Spontaneous
  Country: IT (occurrence: IT)
  Receive Date: 20131118
  Receipt Date: 20131203
  Transmission Date: 20140711
  Serious: Yes (Hospitalization)
  Sender: FDA-Public Use
  Company Number: IT-TEVA-443268ISR

PATIENT
  Age: 67 Year
  Sex: Male

DRUGS (6)
  1. CITALOPRAM [Suspect]
     Indication: DEPRESSION
     Dosage: 1 DOSAGE FORMS DAILY;
     Route: 048
     Dates: start: 20080101, end: 20131005
  2. TAMSULOSINA CLORIDRATO [Suspect]
     Indication: PROSTATE CANCER
     Dosage: .4 MILLIGRAM DAILY;
     Route: 048
     Dates: start: 20080101, end: 20131005
  3. RIVOTRIL 2.5 MG/ML [Concomitant]
  4. RANIDIL 150MG [Concomitant]
  5. IDROPLURIVIT [Concomitant]
  6. AMIODARONE CLORIDRATO [Concomitant]

REACTIONS (1)
  - Hyponatraemia [Recovered/Resolved]
